FAERS Safety Report 25854300 (Version 1)
Quarter: 2025Q3

REPORT INFORMATION
  Report Type: Spontaneous
  Country: RU (occurrence: RU)
  Receive Date: 20250927
  Receipt Date: 20250927
  Transmission Date: 20251020
  Serious: Yes (Hospitalization, Other)
  Sender: ABBVIE
  Company Number: RU-ABBVIE-6476147

PATIENT
  Age: 46 Year
  Sex: Male
  Weight: 98 kg

DRUGS (6)
  1. SEVOFLURANE [Suspect]
     Active Substance: SEVOFLURANE
     Indication: Induction and maintenance of anaesthesia
     Route: 065
     Dates: start: 20250716, end: 20250716
  2. SUCCINYLCHOLINE CHLORIDE [Suspect]
     Active Substance: SUCCINYLCHOLINE CHLORIDE
     Indication: Anaesthesia
     Route: 065
     Dates: start: 20250716, end: 20250716
  3. FENTANYL [Concomitant]
     Active Substance: FENTANYL
     Indication: Anaesthesia
     Route: 042
     Dates: start: 20250716, end: 20250716
  4. FENTANYL [Concomitant]
     Active Substance: FENTANYL
     Indication: Anaesthesia
     Route: 042
     Dates: start: 20250716, end: 20250716
  5. PROPOFOL [Concomitant]
     Active Substance: PROPOFOL
     Indication: Anaesthesia
     Dates: start: 20250716, end: 20250716
  6. PROPOFOL [Concomitant]
     Active Substance: PROPOFOL
     Indication: Anaesthesia
     Route: 042
     Dates: start: 20250716, end: 20250716

REACTIONS (1)
  - Hyperthermia malignant [Recovered/Resolved]

NARRATIVE: CASE EVENT DATE: 20250716
